FAERS Safety Report 9006507 (Version 1)
Quarter: 2012Q4

REPORT INFORMATION
  Report Type: Spontaneous
  Country: None (occurrence: None)
  Receive Date: 20121227
  Receipt Date: 20121227
  Transmission Date: 20130627
  Serious: Yes (Hospitalization)
  Sender: FDA-Public Use
  Company Number: 2012SP005029

PATIENT
  Age: 65 Year
  Sex: Female

DRUGS (4)
  1. FLUOROURACIL (FLUOROURACIL) [Suspect]
     Indication: METASTATIC GASTRIC CANCER
     Route: 042
     Dates: end: 20121126
  2. CISPLATIN (CISPLATIN) (5 MILLIGRAM) (CISPLATIN) [Suspect]
     Indication: METASTATIC GASTRIC CANCER
     Route: 042
     Dates: end: 20121126
  3. DEXAMETHASONE (DEXAMETHASONE) [Suspect]
     Indication: DRUG USE FOR UNKNOWN INDICATION
  4. LEVOTHYROXINE [Suspect]
     Indication: DRUG USE FOR UNKNOWN INDICATION

REACTIONS (8)
  - Blood potassium decreased [None]
  - Blood calcium decreased [None]
  - Blood sodium decreased [None]
  - Abdominal pain [None]
  - Nausea [None]
  - Vomiting [None]
  - Fatigue [None]
  - Loss of consciousness [None]
